FAERS Safety Report 6768325-2 (Version None)
Quarter: 2010Q2

REPORT INFORMATION
  Report Type: 
  Country: None (occurrence: None)
  Receive Date: 20100610
  Receipt Date: 20100601
  Transmission Date: 20101027
  Serious: Yes (Disabling)
  Sender: FDA-Public Use
  Company Number: FR-1181900

PATIENT
  Age: 88 Year
  Sex: Female

DRUGS (2)
  1. TOBRADEX [Suspect]
     Indication: CONJUNCTIVITIS
     Dosage: OPHTHALMIC
     Route: 047
     Dates: start: 20100507, end: 20100510
  2. TEMERIT (NEBIVOLOL HYDROCHLORIDE) [Concomitant]

REACTIONS (1)
  - DEAFNESS [None]
